FAERS Safety Report 16745845 (Version 4)
Quarter: 2019Q4

REPORT INFORMATION
  Report Type: Spontaneous
  Country: PL (occurrence: PL)
  Receive Date: 20190827
  Receipt Date: 20191211
  Transmission Date: 20200122
  Serious: Yes (Life-Threatening, Hospitalization, Other)
  Sender: FDA-Public Use
  Company Number: PHHY2018PL124914

PATIENT
  Age: 30 Year
  Sex: Female

DRUGS (23)
  1. SILDENAFIL. [Suspect]
     Active Substance: SILDENAFIL
     Dosage: UNK
     Route: 065
  2. SILDENAFIL. [Suspect]
     Active Substance: SILDENAFIL
     Indication: MATERNAL EXPOSURE DURING PREGNANCY
     Route: 064
  3. ILOPROST. [Suspect]
     Active Substance: ILOPROST
     Indication: PULMONARY ARTERIAL HYPERTENSION
     Dosage: UNK
     Route: 064
  4. SILDENAFIL. [Suspect]
     Active Substance: SILDENAFIL
     Route: 064
  5. BOSENTAN. [Suspect]
     Active Substance: BOSENTAN
     Dosage: UNK
     Route: 065
  6. ILOPROST. [Suspect]
     Active Substance: ILOPROST
     Route: 064
  7. LEVOSIMENDAN [Suspect]
     Active Substance: LEVOSIMENDAN
     Indication: PULMONARY ARTERIAL HYPERTENSION
     Dosage: UNK
     Route: 042
  8. EPOPROSTENOL. [Suspect]
     Active Substance: EPOPROSTENOL
     Indication: PULMONARY ARTERIAL HYPERTENSION
     Dosage: UNK
     Route: 065
  9. MILRINON ABCUR [Concomitant]
     Indication: PULMONARY ARTERIAL HYPERTENSION
     Route: 065
  10. DILTIAZEM. [Suspect]
     Active Substance: DILTIAZEM
     Indication: MATERNAL EXPOSURE DURING PREGNANCY
     Dosage: UNK
     Route: 064
  11. SILDENAFIL. [Suspect]
     Active Substance: SILDENAFIL
     Indication: PULMONARY ARTERIAL HYPERTENSION
     Dosage: UNK
     Route: 055
  12. CEFTRIAXONE. [Suspect]
     Active Substance: CEFTRIAXONE
     Indication: RESPIRATORY TRACT INFECTION
     Route: 065
  13. CEFTRIAXONE. [Suspect]
     Active Substance: CEFTRIAXONE
     Route: 065
  14. SILDENAFIL. [Suspect]
     Active Substance: SILDENAFIL
     Indication: PULMONARY ARTERIAL HYPERTENSION
     Dosage: UNK
     Route: 065
  15. CEFTRIAXONE. [Suspect]
     Active Substance: CEFTRIAXONE
     Indication: RESPIRATORY TRACT INFECTION
     Dosage: UNK
     Route: 065
  16. DILTIAZEM. [Suspect]
     Active Substance: DILTIAZEM
     Indication: PULMONARY ARTERIAL HYPERTENSION
     Dosage: UNK
     Route: 065
  17. DILTIAZEM. [Suspect]
     Active Substance: DILTIAZEM
     Dosage: UNK
     Route: 064
  18. NITROUS OXIDE. [Suspect]
     Active Substance: NITROUS OXIDE
     Indication: PULMONARY ARTERIAL HYPERTENSION
     Dosage: UNK
     Route: 055
  19. EPOPROSTENOL. [Suspect]
     Active Substance: EPOPROSTENOL
     Indication: PULMONARY ARTERIAL HYPERTENSION
     Dosage: UNK
     Route: 065
  20. BOSENTAN. [Suspect]
     Active Substance: BOSENTAN
     Indication: PULMONARY ARTERIAL HYPERTENSION
     Route: 065
  21. CEFTRIAXONE. [Suspect]
     Active Substance: CEFTRIAXONE
     Indication: URINARY TRACT INFECTION
     Route: 064
  22. CEFTRIAXONE. [Suspect]
     Active Substance: CEFTRIAXONE
     Indication: MATERNAL EXPOSURE DURING PREGNANCY
     Route: 064
  23. CEFTRIAXONE. [Suspect]
     Active Substance: CEFTRIAXONE
     Route: 064

REACTIONS (20)
  - Shock haemorrhagic [Recovered/Resolved]
  - Genital haemorrhage [Recovering/Resolving]
  - Cardiogenic shock [Recovering/Resolving]
  - Respiratory failure [Recovered/Resolved]
  - Off label use [Unknown]
  - Respiratory tract haemorrhage [Recovered/Resolved]
  - Haemothorax [Unknown]
  - Premature delivery [Unknown]
  - Maternal exposure during pregnancy [Unknown]
  - Drug ineffective for unapproved indication [Unknown]
  - Urinary tract infection [Recovering/Resolving]
  - Circulatory collapse [Recovered/Resolved]
  - Peritoneal haemorrhage [Recovering/Resolving]
  - Respiratory tract infection [Recovering/Resolving]
  - Thrombocytopenia [Recovered/Resolved]
  - Foetal exposure during pregnancy [Unknown]
  - Haemorrhage urinary tract [Recovering/Resolving]
  - Pulmonary arterial hypertension [Unknown]
  - Drug ineffective [Unknown]
  - Intensive care [Unknown]
